FAERS Safety Report 12418340 (Version 4)
Quarter: 2016Q2

REPORT INFORMATION
  Report Type: Spontaneous
  Country: HR (occurrence: HR)
  Receive Date: 20160531
  Receipt Date: 20160608
  Transmission Date: 20160815
  Serious: Yes (Other)
  Sender: FDA-Public Use
  Company Number: HR-AMGEN-HRVSP2016068062

PATIENT
  Age: 61 Year
  Sex: Male
  Weight: 90 kg

DRUGS (4)
  1. REVLIMID [Concomitant]
     Active Substance: LENALIDOMIDE
     Dosage: UNK
  2. KYPROLIS [Suspect]
     Active Substance: CARFILZOMIB
     Indication: PLASMA CELL MYELOMA
     Dosage: 40 MG, (1, 2 DAY, 8, 9 DAY AND 15 AND 16 DAY)
     Route: 042
     Dates: start: 20160317
  3. CONTROLOC                          /01263201/ [Concomitant]
     Indication: ABDOMINAL DISCOMFORT
     Dosage: 20 MG, QD
     Dates: start: 201508
  4. FURSEMID                           /00032601/ [Concomitant]
     Indication: CHRONIC KIDNEY DISEASE
     Dosage: 120 MG, QD
     Dates: start: 201601

REACTIONS (1)
  - Liver injury [Unknown]
